FAERS Safety Report 9556061 (Version 2)
Quarter: 2014Q1

REPORT INFORMATION
  Report Type: Report from Study
  Country: US (occurrence: US)
  Receive Date: 20130926
  Receipt Date: 20140312
  Transmission Date: 20141002
  Serious: Yes (Congenital Anomaly)
  Sender: FDA-Public Use
  Company Number: US-TEVA-434401USA

PATIENT
  Sex: 0

DRUGS (6)
  1. LAMIVUDINE AND ZIDOVUDINE [Suspect]
     Route: 065
  2. PREZISTA [Suspect]
  3. LEXIVA [Suspect]
     Route: 065
  4. ZIDOVUDINE [Suspect]
     Route: 065
  5. NORVIR [Suspect]
     Route: 065
  6. VIREAD [Suspect]
     Route: 065

REACTIONS (2)
  - Micrognathia [Unknown]
  - Foetal exposure during pregnancy [Unknown]
